FAERS Safety Report 9961371 (Version 3)
Quarter: 2014Q2

REPORT INFORMATION
  Report Type: Spontaneous
  Country: IE (occurrence: IE)
  Receive Date: 20140305
  Receipt Date: 20140414
  Transmission Date: 20141212
  Serious: Yes (Hospitalization, Disabling)
  Sender: FDA-Public Use
  Company Number: IE-JNJFOC-20140218348

PATIENT
  Age: 73 Year
  Sex: Male

DRUGS (4)
  1. XARELTO [Suspect]
     Indication: HIP ARTHROPLASTY
     Route: 048
     Dates: start: 20140224, end: 20140225
  2. XARELTO [Suspect]
     Indication: THROMBOSIS PROPHYLAXIS
     Route: 048
     Dates: start: 20140224, end: 20140225
  3. QUETIAPINE [Concomitant]
     Indication: DEPRESSION
     Route: 065
  4. VENLAFAXINE [Concomitant]
     Indication: DEPRESSION
     Route: 065

REACTIONS (2)
  - Ischaemic stroke [Recovered/Resolved with Sequelae]
  - Cerebral artery occlusion [Recovered/Resolved with Sequelae]
